FAERS Safety Report 9882535 (Version 1)
Quarter: 2014Q1

REPORT INFORMATION
  Report Type: Spontaneous
  Country: US (occurrence: US)
  Receive Date: 20140207
  Receipt Date: 20140207
  Transmission Date: 20141002
  Serious: No
  Sender: FDA-Public Use
  Company Number: US-PFIZER INC-2014032380

PATIENT
  Age: 37 Year
  Sex: Female
  Weight: 58.95 kg

DRUGS (3)
  1. ZITHROMAX [Suspect]
     Indication: NASOPHARYNGITIS
     Dosage: UNK
     Dates: start: 20140130, end: 201402
  2. ZITHROMAX [Suspect]
     Indication: RESPIRATORY TRACT INFECTION
  3. TACROLIMUS [Concomitant]
     Dosage: UNK

REACTIONS (5)
  - Rash [Not Recovered/Not Resolved]
  - Rash [Not Recovered/Not Resolved]
  - Urticaria [Not Recovered/Not Resolved]
  - Pruritus [Not Recovered/Not Resolved]
  - Pruritus [Not Recovered/Not Resolved]
